FAERS Safety Report 5485390-3 (Version None)
Quarter: 2007Q4

REPORT INFORMATION
  Report Type: 
  Country: None (occurrence: None)
  Receive Date: 20071015
  Receipt Date: 20071001
  Transmission Date: 20080405
  Serious: Yes (Other)
  Sender: FDA-Public Use
  Company Number: US-JNJFOC-20071000434

PATIENT
  Age: 46 Year
  Sex: Female

DRUGS (7)
  1. PREZISTA [Suspect]
     Route: 048
  2. PREZISTA [Suspect]
     Indication: HIV INFECTION
     Route: 048
  3. MK-0518 [Suspect]
     Indication: HIV INFECTION
  4. TRUVADA [Concomitant]
     Indication: HIV INFECTION
     Dosage: 300MG EMTRICITABINE/200MG TENOFOVIR
     Route: 065
  5. VIDEX [Concomitant]
     Indication: HIV INFECTION
     Route: 065
  6. NORVIR [Concomitant]
     Indication: HIV INFECTION
     Route: 065
  7. BACTRIM DS [Concomitant]
     Indication: DRUG USE FOR UNKNOWN INDICATION
     Route: 065

REACTIONS (1)
  - GRAND MAL CONVULSION [None]
